FAERS Safety Report 25602294 (Version 1)
Quarter: 2025Q3

REPORT INFORMATION
  Report Type: Spontaneous
  Country: EU (occurrence: EU)
  Receive Date: 20250724
  Receipt Date: 20250724
  Transmission Date: 20251021
  Serious: Yes (Life-Threatening, Hospitalization)
  Sender: FRESENIUS KABI
  Company Number: None

PATIENT
  Age: 48 Year
  Sex: Male
  Weight: 90.5 kg

DRUGS (7)
  1. LIDOCAINE HYDROCHLORIDE [Suspect]
     Active Substance: LIDOCAINE HYDROCHLORIDE
     Indication: Induction of anaesthesia
     Route: 042
     Dates: start: 20250618, end: 20250618
  2. PROPOFOL [Suspect]
     Active Substance: PROPOFOL
     Indication: Induction of anaesthesia
     Route: 042
     Dates: start: 20250618, end: 20250618
  3. ROCURONIUM BROMIDE [Suspect]
     Active Substance: ROCURONIUM BROMIDE
     Indication: Induction of anaesthesia
     Route: 042
     Dates: start: 20250618, end: 20250618
  4. SUFENTANIL [Suspect]
     Active Substance: SUFENTANIL
     Indication: Induction of anaesthesia
     Route: 042
     Dates: start: 20250618, end: 20250618
  5. KETAMINE HYDROCHLORIDE [Suspect]
     Active Substance: KETAMINE HYDROCHLORIDE
     Indication: Induction of anaesthesia
     Route: 042
     Dates: start: 20250618, end: 20250618
  6. CEFAZOLIN SODIUM [Suspect]
     Active Substance: CEFAZOLIN SODIUM
     Indication: Antibiotic prophylaxis
     Route: 042
     Dates: start: 20250618, end: 20250618
  7. DEXAMETHASONE [Suspect]
     Active Substance: DEXAMETHASONE
     Indication: Induction of anaesthesia
     Route: 042
     Dates: start: 20250618, end: 20250618

REACTIONS (1)
  - Anaphylactic shock [Recovered/Resolved]

NARRATIVE: CASE EVENT DATE: 20250618
